FAERS Safety Report 7542295-1 (Version None)
Quarter: 2011Q2

REPORT INFORMATION
  Report Type: 
  Country: None (occurrence: None)
  Receive Date: 20110606
  Receipt Date: 20110309
  Transmission Date: 20111010
  Serious: Yes (Other)
  Sender: FDA-Public Use
  Company Number: 2011MA006422

PATIENT
  Age: 84 Year
  Sex: Female

DRUGS (7)
  1. AMLODIPINE [Concomitant]
  2. FUROSEMIDE [Concomitant]
  3. METFORMIN HCL [Concomitant]
  4. GLYBURIDE [Concomitant]
  5. LORATADINE [Concomitant]
  6. LOSARTAN POTASSIUM TABLETS USP, 100MG (APMPL) [Suspect]
     Indication: HYPERTENSION
     Dosage: 100 MG;QD;PO
     Route: 048
     Dates: start: 20110304, end: 20110307
  7. COZAAR [Concomitant]

REACTIONS (1)
  - BLOOD GLUCOSE INCREASED [None]
